FAERS Safety Report 18355920 (Version 1)
Quarter: 2020Q4

REPORT INFORMATION
  Report Type: Spontaneous
  Country: RU (occurrence: RU)
  Receive Date: 20201007
  Receipt Date: 20201007
  Transmission Date: 20210114
  Serious: Yes (Other)
  Sender: FDA-Public Use
  Company Number: RU-BAYER-2020-210319

PATIENT
  Age: 43 Year
  Sex: Female

DRUGS (1)
  1. QLAIRA [Suspect]
     Active Substance: DIENOGEST\ESTRADIOL VALERATE
     Indication: CONTRACEPTION
     Dosage: 1 DF, QD
     Route: 048
     Dates: start: 2017

REACTIONS (5)
  - Morning sickness [None]
  - Dizziness [None]
  - Pregnancy on oral contraceptive [None]
  - Haemorrhage in pregnancy [None]
  - Drug ineffective [None]

NARRATIVE: CASE EVENT DATE: 2020
